FAERS Safety Report 25573207 (Version 3)
Quarter: 2025Q4

REPORT INFORMATION
  Report Type: Report from Study
  Country: JP (occurrence: JP)
  Receive Date: 20250717
  Receipt Date: 20251013
  Transmission Date: 20260118
  Serious: Yes (Hospitalization)
  Sender: ALEXION PHARMACEUTICALS
  Company Number: JP-AstraZeneca-CH-00904558A

PATIENT
  Age: 69 Year
  Sex: Female

DRUGS (3)
  1. IMFINZI [Suspect]
     Active Substance: DURVALUMAB
     Indication: Endometrial cancer
     Dosage: UNK
     Route: 065
     Dates: start: 20250121, end: 20250514
  2. LYNPARZA [Suspect]
     Active Substance: OLAPARIB
     Indication: Endometrial cancer
     Dosage: UNK
     Route: 065
     Dates: start: 20250121, end: 20250609
  3. CEFEPIME HYDROCHLORIDE [Suspect]
     Active Substance: CEFEPIME HYDROCHLORIDE
     Dosage: UNK
     Route: 065

REACTIONS (2)
  - Adrenal insufficiency [Recovering/Resolving]
  - Encephalitis [Recovering/Resolving]

NARRATIVE: CASE EVENT DATE: 20250609
